FAERS Safety Report 6397068-2 (Version None)
Quarter: 2009Q4

REPORT INFORMATION
  Report Type: 
  Country: None (occurrence: None)
  Receive Date: 20091012
  Receipt Date: 20090910
  Transmission Date: 20100525
  Serious: No
  Sender: FDA-Public Use
  Company Number: US-BAYER-200914465BCC

PATIENT
  Age: 80 Year
  Sex: Female
  Weight: 66 kg

DRUGS (7)
  1. ALEVE [Suspect]
     Indication: ANAESTHETIC COMPLICATION
     Dosage: UNIT DOSE: 220 MG
     Route: 048
     Dates: start: 20080101, end: 20090101
  2. ENALAPRIL MALEATE [Concomitant]
     Route: 065
  3. TRIAMTERENE AND HYDROCHLOROTHIAZIDE [Concomitant]
     Route: 065
  4. PREMARIN [Concomitant]
     Dosage: 0.425 EVERY FOUR DAYS
     Route: 065
  5. ASPIRIN [Concomitant]
     Route: 065
  6. CLARINEX [Concomitant]
     Route: 065
  7. ALPRAZOLAM [Concomitant]
     Route: 065

REACTIONS (2)
  - ABDOMINAL PAIN UPPER [None]
  - DYSPEPSIA [None]
